FAERS Safety Report 7417170-3 (Version None)
Quarter: 2011Q2

REPORT INFORMATION
  Report Type: 
  Country: None (occurrence: None)
  Receive Date: 20110415
  Receipt Date: 20101029
  Transmission Date: 20111010
  Serious: Yes (Hospitalization, Other)
  Sender: FDA-Public Use
  Company Number: US-BAYER-201022355NA

PATIENT
  Age: 34 Year
  Sex: Female
  Weight: 84 kg

DRUGS (10)
  1. ZOMIG-ZMT [Concomitant]
     Dosage: OCCASION
  2. NEURONTIN [Concomitant]
     Dosage: DAILY
  3. YASMIN [Suspect]
     Indication: PREMENSTRUAL SYNDROME
  4. KLONOPIN [Concomitant]
     Dosage: DAILY
  5. IBUPROFEN [Concomitant]
  6. YAZ [Suspect]
     Indication: ORAL CONTRACEPTION
     Dosage: UNK UNK, QD
     Route: 048
     Dates: start: 20061001, end: 20090901
  7. YAZ [Suspect]
     Indication: PREMENSTRUAL SYNDROME
  8. ZONEGRAN [Concomitant]
     Dosage: DAILY
  9. YASMIN [Suspect]
     Indication: PRODUCT USED FOR UNKNOWN INDICATION
     Dosage: UNK UNK, QD
     Route: 048
     Dates: start: 20030101, end: 20060701
  10. METHYLPREDNISOLONE [Concomitant]
     Dosage: DAILY

REACTIONS (6)
  - PAIN IN EXTREMITY [None]
  - GROIN PAIN [None]
  - CHEST PAIN [None]
  - PULMONARY EMBOLISM [None]
  - CHEST DISCOMFORT [None]
  - DYSPNOEA [None]
